FAERS Safety Report 20376572 (Version 10)
Quarter: 2023Q1

REPORT INFORMATION
  Report Type: Spontaneous
  Country: US (occurrence: US)
  Receive Date: 20220125
  Receipt Date: 20230109
  Transmission Date: 20230417
  Serious: Yes (Other)
  Sender: FDA-Public Use
  Company Number: US-SA-SAC20220115000004

PATIENT
  Age: 12 Year
  Sex: Male
  Weight: 47 kg

DRUGS (22)
  1. ALPROLIX [Suspect]
     Active Substance: EFTRENONACOG ALFA
     Indication: Factor IX deficiency
     Dosage: 1072 IU, QW
     Route: 042
  2. ALPROLIX [Suspect]
     Active Substance: EFTRENONACOG ALFA
     Indication: Factor IX deficiency
     Dosage: 1072 IU, QW
     Route: 042
  3. ALPROLIX [Suspect]
     Active Substance: EFTRENONACOG ALFA
     Dosage: 2096 IU, QW
     Route: 042
  4. ALPROLIX [Suspect]
     Active Substance: EFTRENONACOG ALFA
     Dosage: 2096 IU, QW
     Route: 042
  5. ALPROLIX [Suspect]
     Active Substance: EFTRENONACOG ALFA
     Dosage: 1072 U, QW
     Route: 042
  6. ALPROLIX [Suspect]
     Active Substance: EFTRENONACOG ALFA
     Dosage: 1072 U, QW
     Route: 042
  7. ALPROLIX [Suspect]
     Active Substance: EFTRENONACOG ALFA
     Dosage: 2096 U, QW, START DATE: ??-JAN-2022
     Route: 042
  8. ALPROLIX [Suspect]
     Active Substance: EFTRENONACOG ALFA
     Dosage: 2096 U, QW, START DATE: ??-JAN-2022
     Route: 042
  9. ALPROLIX [Suspect]
     Active Substance: EFTRENONACOG ALFA
     Dosage: 3000 U, QW (EVERY FRIDAY), START DATE: 12-JAN-2022
     Route: 042
  10. ALPROLIX [Suspect]
     Active Substance: EFTRENONACOG ALFA
     Dosage: 3000 U, QW (EVERY FRIDAY), START DATE: 12-JAN-2022
     Route: 042
  11. ALPROLIX [Suspect]
     Active Substance: EFTRENONACOG ALFA
     Dosage: 3000 U, QW (EVERY FRIDAY), START DATE: ??-JAN-2022
     Route: 042
  12. ALPROLIX [Suspect]
     Active Substance: EFTRENONACOG ALFA
     Dosage: 3000 U, QW (EVERY FRIDAY), START DATE: ??-JAN-2022
     Route: 042
  13. ALPROLIX [Suspect]
     Active Substance: EFTRENONACOG ALFA
     Dosage: 4000 U, QW (EVERY FRIDAY), STARTDATE: ??-JAN-2022
     Route: 042
  14. ALPROLIX [Suspect]
     Active Substance: EFTRENONACOG ALFA
     Dosage: 4000 U, QW (EVERY FRIDAY), STARTDATE: ??-JAN-2022
     Route: 042
  15. ALPROLIX [Suspect]
     Active Substance: EFTRENONACOG ALFA
     Dosage: 3000 U, QW (EVERY FRIDAY), START DATE: ??-JAN-2022
     Route: 042
  16. ALPROLIX [Suspect]
     Active Substance: EFTRENONACOG ALFA
     Dosage: 3000 U, QW (EVERY FRIDAY), START DATE: ??-JAN-2022
     Route: 042
  17. ALPROLIX [Suspect]
     Active Substance: EFTRENONACOG ALFA
     Dosage: 3000 U (2700-3300), QW (ONCE EVERY FRIDAY), START DATE: ??-FEB-2022
     Route: 041
  18. ALPROLIX [Suspect]
     Active Substance: EFTRENONACOG ALFA
     Dosage: 3000 U (2700-3300), QW (ONCE EVERY FRIDAY), START DATE: ??-FEB-2022
     Route: 041
  19. ALPROLIX [Suspect]
     Active Substance: EFTRENONACOG ALFA
     Dosage: 3000 IU, QW
     Route: 042
     Dates: start: 20220713
  20. ALPROLIX [Suspect]
     Active Substance: EFTRENONACOG ALFA
     Dosage: 3000 IU, QW
     Route: 042
     Dates: start: 20220713
  21. ALPROLIX [Suspect]
     Active Substance: EFTRENONACOG ALFA
     Dosage: 3000 IU, QW
     Route: 042
     Dates: start: 20210201
  22. ALPROLIX [Suspect]
     Active Substance: EFTRENONACOG ALFA
     Dosage: 3000 IU, QW
     Route: 042
     Dates: start: 20210201

REACTIONS (12)
  - Haemorrhage [Recovered/Resolved]
  - Limb injury [Recovered/Resolved]
  - Traumatic haemorrhage [Recovered/Resolved]
  - Epistaxis [Recovered/Resolved]
  - Fall [Unknown]
  - Weight increased [Unknown]
  - Peripheral swelling [Unknown]
  - Tendon disorder [Unknown]
  - Influenza [Unknown]
  - Epistaxis [Recovered/Resolved]
  - Contusion [Unknown]
  - Joint swelling [Unknown]
